FAERS Safety Report 5124461-8 (Version None)
Quarter: 2006Q4

REPORT INFORMATION
  Report Type: 
  Country: None (occurrence: None)
  Receive Date: 20061006
  Receipt Date: 20060928
  Transmission Date: 20070319
  Serious: Yes (Other)
  Sender: FDA-Public Use
  Company Number: 2006BH005677

PATIENT

DRUGS (2)
  1. DOBUTAMINE HCL [Suspect]
     Indication: CORONARY ARTERY DISEASE
     Dosage: IV
     Route: 042
  2. ATROPINE SULFATE [Suspect]
     Indication: CORONARY ARTERY DISEASE
     Dosage: 0.25 MG//MIN

REACTIONS (1)
  - ACUTE MYOCARDIAL INFARCTION [None]
